FAERS Safety Report 7154817-3 (Version None)
Quarter: 2010Q4

REPORT INFORMATION
  Report Type: 
  Country: None (occurrence: None)
  Receive Date: 20101214
  Receipt Date: 20091109
  Transmission Date: 20110411
  Serious: Yes (Other)
  Sender: FDA-Public Use
  Company Number: US-AMGEN-QUU370450

PATIENT

DRUGS (5)
  1. ENBREL [Suspect]
     Indication: RHEUMATOID ARTHRITIS
     Dosage: UNK UNK, UNK
     Route: 058
  2. ENBREL [Suspect]
     Indication: PSORIATIC ARTHROPATHY
  3. METHOTREXATE [Concomitant]
  4. ALENDRONATE SODIUM [Concomitant]
  5. CELECOXIB [Concomitant]

REACTIONS (2)
  - PSORIATIC ARTHROPATHY [None]
  - RENAL CELL CARCINOMA [None]
